FAERS Safety Report 5127141-8 (Version None)
Quarter: 2006Q4

REPORT INFORMATION
  Report Type: 
  Country: None (occurrence: None)
  Receive Date: 20061013
  Receipt Date: 20061002
  Transmission Date: 20070319
  Serious: Yes (Other)
  Sender: FDA-Public Use
  Company Number: 2006AC01794

PATIENT
  Age: 44 Year
  Sex: Female

DRUGS (4)
  1. IRESSA [Suspect]
     Indication: OVARIAN EPITHELIAL CANCER
     Route: 048
     Dates: start: 20040601
  2. DOXORUBICIN [Suspect]
     Indication: OVARIAN EPITHELIAL CANCER
     Dosage: LIPOSOMAL.
     Dates: start: 20030401, end: 20031101
  3. VINORELBINE [Concomitant]
     Indication: OVARIAN EPITHELIAL CANCER
     Dosage: TAKEN ON DAYS 1 AND 8 OF CYCLE.
     Dates: start: 20040601
  4. OXALIPLATIN [Concomitant]
     Indication: OVARIAN EPITHELIAL CANCER
     Dosage: TAKEN ON DAYS 1 AND 8 OF CYCLE.
     Dates: start: 20040601

REACTIONS (8)
  - ANAEMIA [None]
  - DERMATITIS ACNEIFORM [None]
  - DIARRHOEA [None]
  - ERYTHEMA [None]
  - FUNGAL RASH [None]
  - GINGIVITIS [None]
  - NEUTROPENIA [None]
  - PALMAR-PLANTAR ERYTHRODYSAESTHESIA SYNDROME [None]
